FAERS Safety Report 12780159 (Version 2)
Quarter: 2016Q4

REPORT INFORMATION
  Report Type: Report from Study
  Country: IT (occurrence: IT)
  Receive Date: 20160926
  Receipt Date: 20161227
  Transmission Date: 20170207
  Serious: Yes (Other)
  Sender: FDA-Public Use
  Company Number: IT-PFIZER INC-2016220726

PATIENT
  Age: 51 Year
  Sex: Female

DRUGS (19)
  1. LIPOSOMAL DOXORUBICIN HCL [Suspect]
     Active Substance: DOXORUBICIN HYDROCHLORIDE
     Dosage: 38 (UNSPECIFIED UNITS)
     Dates: start: 20160303
  2. YONDELIS [Suspect]
     Active Substance: TRABECTEDIN
     Dosage: 1.85 MG, CYCLIC
     Route: 042
     Dates: start: 20151230
  3. YONDELIS [Suspect]
     Active Substance: TRABECTEDIN
     Dosage: 1.85 MG,  IN 1 CYCLICAL
     Dates: start: 20160518
  4. LIPOSOMAL DOXORUBICIN HCL [Suspect]
     Active Substance: DOXORUBICIN HYDROCHLORIDE
     Dosage: 38 (UNITS AND FREQUENCY WAS NOT REPORTED) ; CYCLE 5
     Route: 042
     Dates: start: 20160121
  5. LIPOSOMAL DOXORUBICIN HCL [Suspect]
     Active Substance: DOXORUBICIN HYDROCHLORIDE
     Dosage: 39 (UNSPECIFIED UNITS), CYCLE JL TO CYCLE 15
     Route: 042
     Dates: start: 20160610
  6. YONDELIS [Suspect]
     Active Substance: TRABECTEDIN
     Dosage: 1.85 MG, CYCLIC
     Route: 042
     Dates: start: 20151117
  7. LIPOSOMAL DOXORUBICIN HCL [Suspect]
     Active Substance: DOXORUBICIN HYDROCHLORIDE
     Dosage: 38 (UNITS AND FREQUENCY WAS NOT REPORTED)
     Route: 042
     Dates: start: 20151230
  8. LIPOSOMAL DOXORUBICIN HCL [Suspect]
     Active Substance: DOXORUBICIN HYDROCHLORIDE
     Dosage: 39 (UNSPECIFIED UNITS)
     Route: 042
     Dates: start: 20160518
  9. LIPOSOMAL DOXORUBICIN HCL [Suspect]
     Active Substance: DOXORUBICIN HYDROCHLORIDE
     Dosage: 40 (UNITS AND FREQUENCY WAS NOT REPORTED) ; CYCLE 7
     Route: 042
     Dates: start: 20160503
  10. YONDELIS [Suspect]
     Active Substance: TRABECTEDIN
     Dosage: 1.85 MG, CYCLIC
     Route: 042
     Dates: start: 20151210
  11. YONDELIS [Suspect]
     Active Substance: TRABECTEDIN
     Dosage: 1.85 MG, CYCLIC
     Route: 042
     Dates: start: 20160121
  12. LIPOSOMAL DOXORUBICIN HCL [Suspect]
     Active Substance: DOXORUBICIN HYDROCHLORIDE
     Dosage: 50 (UNITS AND F R EQUENCY WAS NOT REPORTED)
     Route: 042
     Dates: start: 20151117
  13. YONDELIS [Suspect]
     Active Substance: TRABECTEDIN
     Indication: OVARIAN CANCER RECURRENT
     Dosage: 1.85 MG, CYCLIC
     Route: 042
     Dates: start: 20151027
  14. LIPOSOMAL DOXORUBICIN HCL [Suspect]
     Active Substance: DOXORUBICIN HYDROCHLORIDE
     Indication: OVARIAN CANCER RECURRENT
     Dosage: 50 (UNITS AND FREQUENCY WAS NOT REPORTED)
     Route: 042
     Dates: start: 20151027
  15. LIPOSOMAL DOXORUBICIN HCL [Suspect]
     Active Substance: DOXORUBICIN HYDROCHLORIDE
     Dosage: 38 (UNSPECIFIED UNITS )
     Route: 042
     Dates: start: 20151210
  16. LIPOSOMAL DOXORUBICIN HCL [Suspect]
     Active Substance: DOXORUBICIN HYDROCHLORIDE
     Dosage: 38 (UNITS AND FREQUENCY WAS NOT REPORTED); CYCLE 6
     Route: 042
     Dates: start: 20160211
  17. YONDELIS [Suspect]
     Active Substance: TRABECTEDIN
     Dosage: 1.5 MG, IN L CYCLICAL
     Route: 042
     Dates: start: 20160211
  18. YONDELIS [Suspect]
     Active Substance: TRABECTEDIN
     Dosage: 1.58 MG, CYCLIC
     Route: 042
     Dates: start: 20160303
  19. YONDELIS [Suspect]
     Active Substance: TRABECTEDIN
     Dosage: 1.46 (UNSPECIFIED UNITS)
     Dates: start: 20160610

REACTIONS (6)
  - Palmar-plantar erythrodysaesthesia syndrome [Unknown]
  - Neutropenia [Unknown]
  - Anal pruritus [Unknown]
  - Hypertransaminasaemia [Recovered/Resolved]
  - Blood creatine phosphokinase [Unknown]
  - Mucosal inflammation [Recovered/Resolved]

NARRATIVE: CASE EVENT DATE: 201511
